FAERS Safety Report 18254603 (Version 1)
Quarter: 2020Q3

REPORT INFORMATION
  Report Type: Report from Study
  Country: US (occurrence: US)
  Receive Date: 20200910
  Receipt Date: 20200910
  Transmission Date: 20201103
  Serious: No
  Sender: FDA-Public Use
  Company Number: NVSC2020US248556

PATIENT
  Sex: Female

DRUGS (1)
  1. MAYZENT [Suspect]
     Active Substance: SIPONIMOD
     Indication: ALOPECIA
     Dosage: UNK UNK, QD
     Route: 048

REACTIONS (2)
  - Product use in unapproved indication [Unknown]
  - Alopecia [Unknown]
